FAERS Safety Report 25242090 (Version 2)
Quarter: 2025Q3

REPORT INFORMATION
  Report Type: Spontaneous
  Country: EU (occurrence: EU)
  Receive Date: 20250426
  Receipt Date: 20250802
  Transmission Date: 20251021
  Serious: Yes (Life-Threatening, Other)
  Sender: AUROBINDO
  Company Number: EU-AFSSAPS-AVMA2025000219

PATIENT
  Age: 47 Year
  Sex: Male

DRUGS (12)
  1. DIAZEPAM [Suspect]
     Active Substance: DIAZEPAM
     Indication: Product used for unknown indication
     Route: 065
  2. QUETIAPINE [Suspect]
     Active Substance: QUETIAPINE
     Indication: Product used for unknown indication
     Route: 065
  3. METHAMPHETAMINE [Suspect]
     Active Substance: METHAMPHETAMINE
     Indication: Product used for unknown indication
     Route: 065
  4. AMPHETAMINE [Suspect]
     Active Substance: AMPHETAMINE
     Indication: Product used for unknown indication
     Route: 065
  5. COCAINE [Suspect]
     Active Substance: COCAINE
     Indication: Product used for unknown indication
     Route: 065
  6. DAFALGAN CODEINE [Suspect]
     Active Substance: ACETAMINOPHEN\CODEINE PHOSPHATE
     Indication: Product used for unknown indication
     Route: 065
  7. CYAMEMAZINE [Suspect]
     Active Substance: CYAMEMAZINE
     Indication: Product used for unknown indication
     Route: 065
  8. OPIUM [Suspect]
     Active Substance: OPIUM
     Indication: Product used for unknown indication
     Route: 065
  9. LOXAPINE [Suspect]
     Active Substance: LOXAPINE
     Indication: Product used for unknown indication
     Route: 065
  10. ALCOHOL [Suspect]
     Active Substance: ALCOHOL
     Indication: Product used for unknown indication
     Route: 065
  11. MIDOMAFETAMINE [Suspect]
     Active Substance: MIDOMAFETAMINE
     Indication: Product used for unknown indication
     Route: 065
  12. ALCOHOL [Suspect]
     Active Substance: ALCOHOL
     Indication: Product used for unknown indication
     Route: 065

REACTIONS (5)
  - Coma [Recovered/Resolved]
  - Miosis [Recovered/Resolved]
  - Bradypnoea [Recovered/Resolved]
  - Substance use disorder [Unknown]
  - Drug use disorder [Unknown]

NARRATIVE: CASE EVENT DATE: 20250124
